FAERS Safety Report 7322498 (Version 30)
Quarter: 2016Q2

REPORT INFORMATION
  Report Type: Report from Study
  Country: CA (occurrence: CA)
  Receive Date: 20100317
  Receipt Date: 20160621
  Transmission Date: 20160815
  Serious: Yes (Other)
  Sender: FDA-Public Use
  Company Number: PHHY2009CA19642

PATIENT
  Age: 64 Year
  Sex: Male

DRUGS (8)
  1. PANTOLOC//PANTOPRAZOLE SODIUM SESQUIHYDRATE [Concomitant]
     Active Substance: PANTOPRAZOLE SODIUM
     Indication: PRODUCT USED FOR UNKNOWN INDICATION
     Route: 065
  2. GLYBURIDE. [Concomitant]
     Active Substance: GLYBURIDE
     Indication: PRODUCT USED FOR UNKNOWN INDICATION
     Route: 065
  3. SANDOSTATIN LAR DEPOT [Suspect]
     Active Substance: OCTREOTIDE ACETATE
     Indication: ACROMEGALY
     Dosage: 10 MG, QMO
     Route: 030
     Dates: start: 20071030
  4. SANDOSTATIN LAR DEPOT [Suspect]
     Active Substance: OCTREOTIDE ACETATE
     Dosage: 20 MG, QMO (EVERY 4 WEEKS)
     Route: 030
  5. ACTOS [Concomitant]
     Active Substance: PIOGLITAZONE HYDROCHLORIDE
     Indication: PRODUCT USED FOR UNKNOWN INDICATION
     Route: 065
  6. MULTI VITAMIN [Concomitant]
     Active Substance: VITAMINS
     Indication: PRODUCT USED FOR UNKNOWN INDICATION
     Route: 065
  7. SIMVASTATIN. [Concomitant]
     Active Substance: SIMVASTATIN
     Indication: PRODUCT USED FOR UNKNOWN INDICATION
     Route: 065
  8. ALTACE [Concomitant]
     Active Substance: RAMIPRIL
     Indication: PRODUCT USED FOR UNKNOWN INDICATION
     Route: 065

REACTIONS (24)
  - Insomnia [Unknown]
  - Arthritis [Unknown]
  - Blood pressure systolic increased [Unknown]
  - Decreased appetite [Unknown]
  - Hip fracture [Unknown]
  - Gastroenteritis viral [Unknown]
  - Glycosylated haemoglobin increased [Unknown]
  - Paranasal sinus discomfort [Unknown]
  - Headache [Unknown]
  - Fall [Unknown]
  - Postoperative wound complication [Unknown]
  - Abdominal discomfort [Unknown]
  - Nausea [Unknown]
  - Blood growth hormone increased [Unknown]
  - Body temperature decreased [Unknown]
  - Diarrhoea [Unknown]
  - Sinusitis [Unknown]
  - Eye irritation [Unknown]
  - Headache [Recovered/Resolved]
  - Arthralgia [Unknown]
  - Rhinorrhoea [Unknown]
  - Blood glucose increased [Unknown]
  - Lacrimation increased [Unknown]
  - Blood pressure diastolic increased [Unknown]

NARRATIVE: CASE EVENT DATE: 2007
